FAERS Safety Report 13627352 (Version 1)
Quarter: 2017Q2

REPORT INFORMATION
  Report Type: Spontaneous
  Country: US (occurrence: US)
  Receive Date: 20170608
  Receipt Date: 20170608
  Transmission Date: 20170830
  Serious: Yes (Hospitalization)
  Sender: FDA-Public Use
  Company Number: US-NOVOPROD-548412

PATIENT
  Sex: Female

DRUGS (1)
  1. ACTIVELLA [Suspect]
     Active Substance: ESTRADIOL\NORETHINDRONE ACETATE
     Indication: PRODUCT USED FOR UNKNOWN INDICATION
     Dosage: 1 MG/0.5 MG, QD
     Route: 048
     Dates: start: 20170526

REACTIONS (5)
  - Abdominal pain upper [Unknown]
  - Asthenia [Unknown]
  - Hospitalisation [Recovered/Resolved]
  - Thrombosis [Unknown]
  - Vaginal haemorrhage [Unknown]

NARRATIVE: CASE EVENT DATE: 201705
